FAERS Safety Report 7196701-5 (Version None)
Quarter: 2010Q4

REPORT INFORMATION
  Report Type: 
  Country: None (occurrence: None)
  Receive Date: 20101223
  Receipt Date: 20101029
  Transmission Date: 20110411
  Serious: Yes (Hospitalization, Other)
  Sender: FDA-Public Use
  Company Number: US-AMGEN-USASP2010002336

PATIENT

DRUGS (1)
  1. ENBREL [Suspect]
     Indication: RHEUMATOID ARTHRITIS
     Dosage: 50 MG, QWK
     Dates: start: 20021001, end: 20100501

REACTIONS (6)
  - ARTHRALGIA [None]
  - ARTHRODESIS [None]
  - MUSCULOSKELETAL PAIN [None]
  - PARAESTHESIA [None]
  - PNEUMONIA [None]
  - STAPHYLOCOCCAL INFECTION [None]
